FAERS Safety Report 9882209 (Version 2)
Quarter: 2014Q1

REPORT INFORMATION
  Report Type: Spontaneous
  Country: US (occurrence: US)
  Receive Date: 20140207
  Receipt Date: 20140310
  Transmission Date: 20141002
  Serious: Yes (Death)
  Sender: FDA-Public Use
  Company Number: US-ACTELION-A-US2014-94341

PATIENT
  Age: 65 Year
  Sex: Male

DRUGS (2)
  1. TRACLEER [Suspect]
     Indication: COR PULMONALE CHRONIC
     Dosage: UNK
     Route: 048
     Dates: end: 20140126
  2. COUMADIN [Concomitant]

REACTIONS (1)
  - Death [Fatal]
